FAERS Safety Report 20025672 (Version 2)
Quarter: 2021Q4

REPORT INFORMATION
  Report Type: Report from Study
  Country: FR (occurrence: FR)
  Receive Date: 20211102
  Receipt Date: 20211208
  Transmission Date: 20220303
  Serious: Yes (Hospitalization)
  Sender: FDA-Public Use
  Company Number: FR-NOVARTISPH-NVSC2021FR245218

PATIENT
  Age: 28 Year
  Sex: Male
  Weight: 73 kg

DRUGS (15)
  1. CYTARABINE [Suspect]
     Active Substance: CYTARABINE
     Indication: Chemotherapy
     Dosage: 40 MG
     Route: 037
     Dates: start: 20210727, end: 20210727
  2. NILOTINIB [Suspect]
     Active Substance: NILOTINIB
     Indication: Acute lymphocytic leukaemia
     Dosage: 800 MG
     Route: 048
     Dates: start: 20210727
  3. VINCRISTINE [Suspect]
     Active Substance: VINCRISTINE
     Indication: Chemotherapy
     Dosage: 2 MG
     Route: 042
     Dates: start: 20210727, end: 20211001
  4. DEXAMETHASONE [Concomitant]
     Active Substance: DEXAMETHASONE
     Indication: Chemotherapy
     Dosage: 40 MG
     Route: 042
     Dates: start: 20210727, end: 20211002
  5. ALPRAZOLAM [Concomitant]
     Active Substance: ALPRAZOLAM
     Indication: Anxiety
     Dosage: 0.5 MG
     Route: 048
     Dates: start: 20210805
  6. VALACYCLOVIR HYDROCHLORIDE [Concomitant]
     Active Substance: VALACYCLOVIR HYDROCHLORIDE
     Indication: Prophylaxis
     Dosage: 1 G
     Route: 048
     Dates: start: 20210719
  7. METHOTREXATE [Concomitant]
     Active Substance: METHOTREXATE
     Indication: Chemotherapy
     Dosage: 15 MG
     Route: 037
     Dates: start: 20210722, end: 20210727
  8. AMIKACIN [Concomitant]
     Active Substance: AMIKACIN
     Indication: Prophylaxis
     Dosage: 50 MG
     Route: 048
     Dates: start: 20210805
  9. OMEPRAZOLE [Concomitant]
     Active Substance: OMEPRAZOLE
     Indication: Reflux gastritis
     Dosage: 20 MG
     Route: 048
     Dates: start: 20211001, end: 20211101
  10. NEFOPAM [Concomitant]
     Active Substance: NEFOPAM
     Indication: Musculoskeletal chest pain
     Dosage: 80 MG
     Route: 042
     Dates: start: 20210806, end: 20210809
  11. FILGRASTIM [Concomitant]
     Active Substance: FILGRASTIM
     Indication: Aplasia
     Dosage: 48 UL
     Route: 058
     Dates: start: 20210807
  12. SULFAMETHOXAZOLE AND TRIMETHOPRIM [Concomitant]
     Active Substance: SULFAMETHOXAZOLE\TRIMETHOPRIM
     Indication: Prophylaxis
     Dosage: UNK
     Route: 048
     Dates: start: 20211001, end: 20211101
  13. LEUCOVORIN CALCIUM [Concomitant]
     Active Substance: LEUCOVORIN CALCIUM
     Indication: Prophylaxis
     Dosage: 25 MG
     Route: 048
     Dates: start: 20211001, end: 20211101
  14. CIPROFLOXACIN [Concomitant]
     Active Substance: CIPROFLOXACIN
     Indication: Prophylaxis
     Dosage: 400 MG
     Route: 042
     Dates: start: 20210807
  15. DOMPERIDONE [Concomitant]
     Active Substance: DOMPERIDONE
     Indication: Nausea
     Dosage: 60 MG
     Route: 048
     Dates: start: 20211001, end: 20211101

REACTIONS (2)
  - Lumbar puncture [Recovered/Resolved with Sequelae]
  - Escherichia infection [Recovered/Resolved]

NARRATIVE: CASE EVENT DATE: 20210810
